FAERS Safety Report 9293442 (Version 8)
Quarter: 2015Q2

REPORT INFORMATION
  Report Type: Spontaneous
  Country: US (occurrence: US)
  Receive Date: 20130517
  Receipt Date: 20150414
  Transmission Date: 20150821
  Serious: Yes (Hospitalization, Other)
  Sender: FDA-Public Use
  Company Number: US-009507513-1305USA009963

PATIENT
  Sex: Male
  Weight: 94.33 kg

DRUGS (3)
  1. ADVICOR [Concomitant]
     Active Substance: LOVASTATIN\NIACIN
     Indication: BLOOD CHOLESTEROL
     Dosage: UNK
     Dates: start: 2002
  2. PROPECIA [Suspect]
     Active Substance: FINASTERIDE
     Indication: ALOPECIA
     Dosage: 1 MG, UNK
     Route: 048
     Dates: start: 200706, end: 200711
  3. NEXIUM [Concomitant]
     Active Substance: ESOMEPRAZOLE MAGNESIUM
     Indication: GASTROOESOPHAGEAL REFLUX DISEASE
     Dosage: UNK
     Dates: start: 2004, end: 2008

REACTIONS (81)
  - Prostate cancer [Unknown]
  - Inguinal hernia gangrenous [Unknown]
  - Inguinal hernia [Unknown]
  - Prosthesis implantation [Unknown]
  - Feeling abnormal [Unknown]
  - Dysuria [Unknown]
  - Inguinal hernia [Unknown]
  - Haemorrhoids [Unknown]
  - Dysphagia [Unknown]
  - Prostatectomy [Unknown]
  - Spinal laminectomy [Unknown]
  - Myocardial infarction [Unknown]
  - Prostatic atrophy [Unknown]
  - Abnormal dreams [Unknown]
  - Brain injury [Unknown]
  - Agitation [Unknown]
  - Colitis ulcerative [Unknown]
  - Chronic obstructive pulmonary disease [Not Recovered/Not Resolved]
  - Muscular weakness [Unknown]
  - Pain in extremity [Unknown]
  - Knee operation [Unknown]
  - Sexual dysfunction [Not Recovered/Not Resolved]
  - Soft tissue injury [Unknown]
  - Chills [Unknown]
  - Hypertonic bladder [Unknown]
  - Appendicectomy [Unknown]
  - Suicide attempt [Unknown]
  - Gastric cancer [Unknown]
  - Inflammation [Not Recovered/Not Resolved]
  - Urinary incontinence [Recovered/Resolved]
  - Dry mouth [Unknown]
  - Medical device implantation [Unknown]
  - Decreased appetite [Unknown]
  - Epistaxis [Unknown]
  - Dyspepsia [Unknown]
  - Fall [Unknown]
  - Depression [Unknown]
  - Hypothyroidism [Unknown]
  - Back pain [Unknown]
  - Dry mouth [Unknown]
  - Cough [Not Recovered/Not Resolved]
  - Irritable bowel syndrome [Unknown]
  - Haemoptysis [Unknown]
  - Paraesthesia [Unknown]
  - Nocturia [Unknown]
  - Laceration [Unknown]
  - Back pain [Unknown]
  - Anxiety [Unknown]
  - Intentional overdose [Unknown]
  - Prosthesis user [Unknown]
  - Inguinal hernia [Recovered/Resolved]
  - Polyuria [Unknown]
  - Haematuria [Unknown]
  - Dyspareunia [Unknown]
  - Prostatic specific antigen increased [Unknown]
  - Contusion [Unknown]
  - Erectile dysfunction [Recovered/Resolved]
  - Thyroid cancer [Unknown]
  - Hormone level abnormal [Unknown]
  - Inguinal hernia [Unknown]
  - Penile pain [Unknown]
  - Impaired fasting glucose [Unknown]
  - Arthralgia [Unknown]
  - Chest pain [Unknown]
  - Myocardial infarction [Unknown]
  - Hallucination [Unknown]
  - Elbow operation [Unknown]
  - Artificial urinary sphincter implant [Unknown]
  - Inguinal hernia, obstructive [Unknown]
  - Chest pain [Unknown]
  - Flushing [Unknown]
  - Tooth injury [Unknown]
  - Migraine [Unknown]
  - Fatigue [Unknown]
  - Peptic ulcer [Unknown]
  - Insomnia [Unknown]
  - Post procedural complication [Unknown]
  - Bladder neck suspension [Unknown]
  - Subdural haematoma [Recovered/Resolved]
  - Skin abrasion [Unknown]
  - Tonsillectomy [Unknown]

NARRATIVE: CASE EVENT DATE: 200706
